FAERS Safety Report 21315672 (Version 1)
Quarter: 2022Q3

REPORT INFORMATION
  Report Type: Spontaneous
  Country: US (occurrence: US)
  Receive Date: 20220909
  Receipt Date: 20220909
  Transmission Date: 20221026
  Serious: Yes (Other)
  Sender: FDA-Public Use
  Company Number: US-BIOMARINAP-US-2022-145361

PATIENT

DRUGS (2)
  1. NAGLAZYME [Suspect]
     Active Substance: GALSULFASE
     Indication: Mucopolysaccharidosis VI
     Dosage: 20 MILLIGRAM, QW
     Route: 042
     Dates: start: 20210901
  2. HUMIRA [Concomitant]
     Active Substance: ADALIMUMAB
     Indication: Product used for unknown indication
     Dosage: 20 MILLIGRAM, QOW
     Route: 065
     Dates: start: 20220701

REACTIONS (6)
  - Haematemesis [Recovered/Resolved]
  - Epistaxis [Recovered/Resolved]
  - Fatigue [Recovering/Resolving]
  - Cold sweat [Recovering/Resolving]
  - Crying [Recovering/Resolving]
  - Abdominal pain [Recovering/Resolving]

NARRATIVE: CASE EVENT DATE: 20220830
